FAERS Safety Report 24145866 (Version 2)
Quarter: 2024Q3

REPORT INFORMATION
  Report Type: Spontaneous
  Country: US (occurrence: US)
  Receive Date: 20240729
  Receipt Date: 20240925
  Transmission Date: 20241017
  Serious: No
  Sender: BRISTOL MYERS SQUIBB
  Company Number: US-BRISTOL-MYERS SQUIBB COMPANY-2024-119276

PATIENT
  Age: 86 Year
  Sex: Male
  Weight: 101.6 kg

DRUGS (1)
  1. REVLIMID [Suspect]
     Active Substance: LENALIDOMIDE
     Indication: Diffuse large B-cell lymphoma
     Dosage: FREQUENCY: FOR 21 DAYS
     Route: 048
     Dates: start: 202407

REACTIONS (8)
  - Nausea [Unknown]
  - Rash vesicular [Unknown]
  - Off label use [Unknown]
  - Dehydration [Unknown]
  - Epistaxis [Unknown]
  - White blood cell count decreased [Unknown]
  - Extra dose administered [Unknown]
  - Memory impairment [Unknown]

NARRATIVE: CASE EVENT DATE: 20240901
